FAERS Safety Report 7788298-3 (Version None)
Quarter: 2011Q3

REPORT INFORMATION
  Report Type: 
  Country: None (occurrence: None)
  Receive Date: 20110930
  Receipt Date: 20110921
  Transmission Date: 20111222
  Serious: Yes (Other)
  Sender: FDA-Public Use
  Company Number: US-JNJFOC-20110909854

PATIENT
  Sex: Female
  Weight: 49.9 kg

DRUGS (4)
  1. PROPRANOLOL [Concomitant]
     Indication: CARDIAC DISORDER
     Route: 048
     Dates: start: 20010101
  2. MAXZIDE [Concomitant]
     Indication: BLOOD PRESSURE
     Route: 048
     Dates: start: 20060101
  3. TOPAMAX [Suspect]
     Indication: MIGRAINE PROPHYLAXIS
     Route: 048
     Dates: start: 20110601
  4. FLONASE [Concomitant]
     Indication: MULTIPLE ALLERGIES
     Route: 048
     Dates: start: 20010101

REACTIONS (4)
  - VERTIGO [None]
  - TINNITUS [None]
  - DEAFNESS [None]
  - ALOPECIA [None]
